FAERS Safety Report 4342520-4 (Version None)
Quarter: 2004Q2

REPORT INFORMATION
  Report Type: 
  Country: None (occurrence: None)
  Receive Date: 20040415
  Receipt Date: 20040330
  Transmission Date: 20050107
  Serious: Yes (Other)
  Sender: FDA-Public Use
  Company Number: 601194

PATIENT
  Age: 54 Year
  Sex: Male
  Weight: 87.0906 kg

DRUGS (4)
  1. POLYGAM S/D [Suspect]
     Indication: CHRONIC INFLAMMATORY DEMYELINATING POLYRADICULONEUROPATHY
     Dosage: 40 GM;QD; INTRAVENOUS
     Route: 042
     Dates: start: 20040216, end: 20040219
  2. GAMMAGARD S/D [Suspect]
     Indication: CHRONIC INFLAMMATORY DEMYELINATING POLYRADICULONEUROPATHY
     Dosage: 5 GM;QM; INTRAVENOUS
     Route: 042
     Dates: start: 20040219, end: 20040219
  3. DIOVAN [Concomitant]
  4. CELLCEPT [Concomitant]

REACTIONS (4)
  - CEREBRAL INFARCTION [None]
  - MEDICATION ERROR [None]
  - NAUSEA [None]
  - VISUAL DISTURBANCE [None]
